FAERS Safety Report 21786880 (Version 3)
Quarter: 2023Q1

REPORT INFORMATION
  Report Type: Report from Study
  Country: PR (occurrence: PR)
  Receive Date: 20221228
  Receipt Date: 20230324
  Transmission Date: 20230417
  Serious: Yes (Other)
  Sender: FDA-Public Use
  Company Number: PR-ABBVIE-4251032

PATIENT
  Sex: Female
  Weight: 97.068 kg

DRUGS (9)
  1. HUMIRA [Suspect]
     Active Substance: ADALIMUMAB
     Indication: Rheumatoid arthritis
     Dosage: FORM STRENGTH: 40 MILLIGRAM?STOP DATE TEXT: ABOUT 10 YEARS AGO?ADDITIONAL COMMENTS: NOT AT HAND B...
     Route: 058
     Dates: start: 2010
  2. HUMIRA [Suspect]
     Active Substance: ADALIMUMAB
     Dosage: FORM STRENGTH: 40 MILLIGRAM?START DATE TEXT: ABOUT 10 YEARS AGO
     Route: 058
  3. TOZINAMERAN [Concomitant]
     Active Substance: TOZINAMERAN
     Indication: COVID-19 immunisation
     Dosage: 1ST DOSE FREQUENCY ONE IN ONCE
     Route: 030
  4. TOZINAMERAN [Concomitant]
     Active Substance: TOZINAMERAN
     Indication: COVID-19 immunisation
     Dosage: 2ND DOSE FREQUENCY ONE IN ONCE
     Route: 030
  5. TOZINAMERAN [Concomitant]
     Active Substance: TOZINAMERAN
     Indication: COVID-19 immunisation
     Dosage: 3RD DOSE FREQUENCY ONE IN ONCE
     Route: 030
  6. RELAFEN [Concomitant]
     Active Substance: NABUMETONE
     Indication: Pain
     Dosage: FORM STRENGTH: 750 MILLIGRAM? START DATE TEXT: OVER 12 YEARS AGO
     Route: 048
  7. NEURONTIN [Concomitant]
     Active Substance: GABAPENTIN
     Indication: Muscle spasms
     Dosage: FORM STRENGTH: 400 MILLIGRAM?FREQUENCY TEXT: IN THE MORINING
     Route: 048
     Dates: start: 2020, end: 2020
  8. NEURONTIN [Concomitant]
     Active Substance: GABAPENTIN
     Indication: Muscle spasms
     Dosage: FORM STRENGTH: 800 MILLIGRAM?ONSET 2020
     Route: 048
  9. METHOTREXATE [Concomitant]
     Active Substance: METHOTREXATE
     Indication: Rheumatoid arthritis
     Dosage: FORM STRENGTH: 2.5 MILLIGRAM
     Route: 048
     Dates: start: 1997

REACTIONS (3)
  - Osteoarthritis [Recovered/Resolved]
  - Ovarian cyst [Recovered/Resolved]
  - Osteoarthritis [Recovering/Resolving]

NARRATIVE: CASE EVENT DATE: 20120301
